FAERS Safety Report 16937079 (Version 3)
Quarter: 2019Q4

REPORT INFORMATION
  Report Type: Report from Study
  Country: BR (occurrence: BR)
  Receive Date: 20191019
  Receipt Date: 20191210
  Transmission Date: 20200122
  Serious: Yes (Hospitalization, Other)
  Sender: FDA-Public Use
  Company Number: BR-ROCHE-1530792

PATIENT
  Age: 50 Year
  Sex: Female
  Weight: 72 kg

DRUGS (8)
  1. DICLOFENAC [Concomitant]
     Active Substance: DICLOFENAC
  2. HYDROCHLOROTHIAZIDE. [Concomitant]
     Active Substance: HYDROCHLOROTHIAZIDE
     Indication: HYPERTENSION
  3. FOLIC ACID. [Concomitant]
     Active Substance: FOLIC ACID
  4. METHOTREXATE. [Concomitant]
     Active Substance: METHOTREXATE
  5. ACTEMRA [Suspect]
     Active Substance: TOCILIZUMAB
     Indication: RHEUMATOID ARTHRITIS
     Dosage: ON 24/JUN/2019 MOST RECENT INFUSION OF TOCILIZUMAB WAS ADMINISTERED.
     Route: 042
     Dates: start: 20141128
  6. FUROSEMIDE. [Concomitant]
     Active Substance: FUROSEMIDE
  7. ACTEMRA [Suspect]
     Active Substance: TOCILIZUMAB
     Route: 042
     Dates: start: 20150121
  8. ENALAPRIL [Concomitant]
     Active Substance: ENALAPRIL

REACTIONS (15)
  - Drug ineffective [Unknown]
  - Skin exfoliation [Recovered/Resolved]
  - Coma [Recovered/Resolved]
  - Arthritis [Recovered/Resolved]
  - Fluid retention [Recovered/Resolved]
  - Swelling [Recovered/Resolved]
  - Onychomadesis [Recovered/Resolved]
  - Onychoclasis [Recovered/Resolved]
  - Rheumatoid arthritis [Recovered/Resolved]
  - Necrosis [Recovered/Resolved]
  - Infection [Recovered/Resolved]
  - Platelet count decreased [Recovered/Resolved]
  - Wound [Recovered/Resolved]
  - Blister [Recovered/Resolved]
  - Blister rupture [Recovered/Resolved]

NARRATIVE: CASE EVENT DATE: 201907
